FAERS Safety Report 8793261 (Version 2)
Quarter: 2012Q4

REPORT INFORMATION
  Report Type: Report from Study
  Country: JP (occurrence: JP)
  Receive Date: 20120918
  Receipt Date: 20121128
  Transmission Date: 20130627
  Serious: Yes (Hospitalization)
  Sender: FDA-Public Use
  Company Number: JP-009507513-2012SP024641

PATIENT
  Age: 65 Year
  Sex: Male
  Weight: 65 kg

DRUGS (7)
  1. PEGINTRON [Suspect]
     Indication: HEPATITIS C
     Dosage: 1.5 ?g/kg, QW
     Route: 058
     Dates: start: 20120313, end: 20120404
  2. REBETOL [Suspect]
     Indication: HEPATITIS C
     Dosage: 800 mg, qd
     Route: 048
     Dates: start: 20120313, end: 20120404
  3. TELAVIC [Suspect]
     Indication: HEPATITIS C
     Dosage: 2250 mg, qd
     Route: 048
     Dates: start: 20120313, end: 20120404
  4. BACTRAMIN [Suspect]
     Indication: ADVERSE EVENT
     Dosage: 1 DF, qd
     Route: 048
     Dates: start: 20120502, end: 20120610
  5. LASIX (FUROSEMIDE) [Concomitant]
     Indication: PROPHYLAXIS
     Dosage: 20 mg, qd
     Route: 048
     Dates: end: 20120501
  6. ALDACTONE A [Concomitant]
     Indication: PROPHYLAXIS
     Dosage: 25 mg, qd
     Route: 048
     Dates: end: 20120501
  7. CELESTAMINE [Concomitant]
     Indication: PROPHYLAXIS
     Dosage: 10 mg, qd
     Route: 048
     Dates: end: 20120425

REACTIONS (3)
  - Interstitial lung disease [Recovering/Resolving]
  - Hepatic failure [Recovering/Resolving]
  - Oedema [Unknown]
